FAERS Safety Report 18736599 (Version 1)
Quarter: 2021Q1

REPORT INFORMATION
  Report Type: Spontaneous
  Country: US (occurrence: US)
  Receive Date: 20210113
  Receipt Date: 20210113
  Transmission Date: 20210419
  Serious: Yes (Hospitalization)
  Sender: FDA-Public Use
  Company Number: US-MYLANLABS-2021M1001674

PATIENT
  Age: 64 Year
  Sex: Male

DRUGS (4)
  1. MESNA. [Concomitant]
     Active Substance: MESNA
     Indication: CHEMOTHERAPY SIDE EFFECT PROPHYLAXIS
     Dosage: UNK, CYCLE RECEIVED 5 CYCLES AS PART OF AIM REGIMEN
     Route: 065
  2. IFOSFAMIDE. [Suspect]
     Active Substance: IFOSFAMIDE
     Indication: SOFT TISSUE NEOPLASM
     Dosage: UNK, CYCLE CUMULATIVE DOSE: 30 G/M2; RECEIVED 5 CYCLES AS PART OF AIM REGIMEN
     Route: 065
  3. POTASSIUM CHLORIDE. [Suspect]
     Active Substance: POTASSIUM CHLORIDE
     Indication: HYPOKALAEMIA
     Dosage: MULTIPLE RUNS
     Route: 042
  4. ADRIAMYCIN [Concomitant]
     Active Substance: DOXORUBICIN HYDROCHLORIDE
     Indication: SOFT TISSUE NEOPLASM
     Dosage: UNK, CYCLE RECEIVED 5 CYCLES AS PART OF AIM REGIMEN
     Route: 065

REACTIONS (2)
  - Fanconi syndrome acquired [Recovered/Resolved]
  - Drug ineffective [Unknown]
